FAERS Safety Report 19905936 (Version 1)
Quarter: 2021Q3

REPORT INFORMATION
  Report Type: Spontaneous
  Country: CA (occurrence: CA)
  Receive Date: 20210930
  Receipt Date: 20210930
  Transmission Date: 20211014
  Serious: Yes (Hospitalization)
  Sender: FDA-Public Use
  Company Number: CA-TEVA-2021-CA-1958327

PATIENT
  Age: 4 Year
  Sex: Male
  Weight: 15 kg

DRUGS (8)
  1. LAX?A?DAY [Concomitant]
     Active Substance: POLYETHYLENE GLYCOL 3350
  2. METHOTREXATE. [Suspect]
     Active Substance: METHOTREXATE
     Route: 065
  3. DEXAMETHASONE. [Suspect]
     Active Substance: DEXAMETHASONE
     Route: 065
  4. BACTRIM [Concomitant]
     Active Substance: SULFAMETHOXAZOLE\TRIMETHOPRIM
  5. NEURONTIN [Concomitant]
     Active Substance: GABAPENTIN
  6. MERCAPTOPURINE. [Suspect]
     Active Substance: MERCAPTOPURINE
     Route: 065
  7. VINCRISTINE SULFATE. [Suspect]
     Active Substance: VINCRISTINE SULFATE
     Route: 065
  8. MORPHINE [Concomitant]
     Active Substance: MORPHINE

REACTIONS (3)
  - Upper respiratory tract infection [Recovered/Resolved]
  - Febrile neutropenia [Recovered/Resolved]
  - Otitis media acute [Recovered/Resolved]
